FAERS Safety Report 16039125 (Version 1)
Quarter: 2019Q1

REPORT INFORMATION
  Report Type: Report from Study
  Country: CN (occurrence: CN)
  Receive Date: 20190306
  Receipt Date: 20190306
  Transmission Date: 20190418
  Serious: Yes (Other)
  Sender: FDA-Public Use
  Company Number: CN-ROCHE-2271394

PATIENT

DRUGS (3)
  1. CAPECITABINE. [Suspect]
     Active Substance: CAPECITABINE
     Dosage: DAY 1 TO DAY 14
     Route: 048
  2. OXALIPLATIN. [Suspect]
     Active Substance: OXALIPLATIN
     Indication: RECTAL CANCER STAGE III
     Dosage: WEEK 1, 2, 4 AND 5 OF RADIOTHERAPY
     Route: 042
  3. CAPECITABINE. [Suspect]
     Active Substance: CAPECITABINE
     Indication: RECTAL CANCER STAGE III
     Dosage: DAY 1 TO DAY 14
     Route: 048

REACTIONS (10)
  - Decreased appetite [Unknown]
  - Haemoglobin abnormal [Unknown]
  - Nausea [Unknown]
  - Alanine aminotransferase abnormal [Unknown]
  - Abdominal pain [Unknown]
  - Diarrhoea [Unknown]
  - Rectal tenesmus [Unknown]
  - White blood cell disorder [Unknown]
  - Platelet disorder [Unknown]
  - Radiation skin injury [Unknown]
